FAERS Safety Report 5133061-5 (Version None)
Quarter: 2006Q4

REPORT INFORMATION
  Report Type: 
  Country: None (occurrence: None)
  Receive Date: 20061018
  Receipt Date: 20060519
  Transmission Date: 20070319
  Serious: Yes (Hospitalization)
  Sender: FDA-Public Use
  Company Number: 805#1#2006-00077

PATIENT
  Age: 70 Year
  Sex: Male

DRUGS (9)
  1. ALPROSTADIL [Suspect]
     Indication: ARTERIOSCLEROSIS OBLITERANS
     Dosage: SEE IMAGE
     Route: 041
     Dates: start: 20060322, end: 20060331
  2. ALPROSTADIL [Suspect]
     Indication: ARTERIOSCLEROSIS OBLITERANS
     Dosage: SEE IMAGE
     Route: 041
     Dates: start: 20060401, end: 20060401
  3. SPIRONOLACTONE [Concomitant]
  4. FUROSEMIDE [Concomitant]
  5. WARFARIN POTASSIUM (WARFARIN) [Concomitant]
  6. OMEPRAZOLE [Concomitant]
  7. HANP (CARPERITIDE) [Concomitant]
  8. DOPAMINE HYDROCHLORIDE [Concomitant]
  9. DOBUTAMINE HCL [Concomitant]

REACTIONS (7)
  - CARDIAC FAILURE ACUTE [None]
  - CONDITION AGGRAVATED [None]
  - DYSPNOEA [None]
  - MALAISE [None]
  - PAIN IN EXTREMITY [None]
  - PALPITATIONS [None]
  - THERAPY NON-RESPONDER [None]
